FAERS Safety Report 9438252 (Version 1)
Quarter: 2013Q3

REPORT INFORMATION
  Report Type: Spontaneous
  Country: US (occurrence: US)
  Receive Date: 20130802
  Receipt Date: 20130802
  Transmission Date: 20140515
  Serious: No
  Sender: FDA-Public Use
  Company Number: US-BRISTOL-MYERS SQUIBB COMPANY-17001736

PATIENT
  Age: 70 Year
  Sex: Female

DRUGS (2)
  1. COUMADIN [Suspect]
     Dosage: DOSE INCREASED ON 17SEP12
     Route: 065
  2. LETAIRIS [Suspect]
     Indication: PULMONARY ARTERIAL HYPERTENSION
     Dosage: TAB.
     Route: 048
     Dates: start: 20120724

REACTIONS (1)
  - Rash [None]
